FAERS Safety Report 20451865 (Version 1)
Quarter: 2022Q1

REPORT INFORMATION
  Report Type: Spontaneous
  Country: US (occurrence: US)
  Receive Date: 20220209
  Receipt Date: 20220209
  Transmission Date: 20220424
  Serious: Yes (Life-Threatening, Hospitalization, Other)
  Sender: FDA-Public Use
  Company Number: US-MLMSERVICE-20220125-3334644-1

PATIENT
  Age: 15 Year
  Sex: Female

DRUGS (4)
  1. REMICADE [Suspect]
     Active Substance: INFLIXIMAB
     Indication: Iridocyclitis
     Dosage: 9 YEARS PERIOD OF TIME BUT WITH FLUCTUATING DOSES
     Route: 042
  2. REMICADE [Suspect]
     Active Substance: INFLIXIMAB
     Indication: Juvenile idiopathic arthritis
  3. METHOTREXATE [Suspect]
     Active Substance: METHOTREXATE
     Indication: Iridocyclitis
     Route: 065
  4. METHOTREXATE [Suspect]
     Active Substance: METHOTREXATE
     Indication: Juvenile idiopathic arthritis

REACTIONS (6)
  - Respiratory distress [Recovering/Resolving]
  - Obstructive airways disorder [Recovering/Resolving]
  - Upper respiratory tract infection [Recovering/Resolving]
  - Alpha haemolytic streptococcal infection [Recovering/Resolving]
  - Epstein-Barr virus associated lymphoproliferative disorder [Recovering/Resolving]
  - Haemophilus infection [Recovering/Resolving]
